FAERS Safety Report 5211241-8 (Version None)
Quarter: 2006Q4

REPORT INFORMATION
  Report Type: 
  Country: None (occurrence: None)
  Receive Date: 20061130
  Receipt Date: 20060426
  Transmission Date: 20070319
  Serious: Yes (Other)
  Sender: FDA-Public Use
  Company Number: WAES 0604USA03996

PATIENT
  Age: 72 Year
  Sex: Female

DRUGS (18)
  1. FOSAMAX [Suspect]
     Indication: OSTEOPOROSIS
     Dosage: 10 MG/DAILY/PO;  70 MG/WKY/PO
     Route: 048
     Dates: start: 19990101, end: 20030101
  2. FOSAMAX [Suspect]
     Indication: OSTEOPOROSIS
     Dosage: 10 MG/DAILY/PO;  70 MG/WKY/PO
     Route: 048
     Dates: start: 20030101, end: 20060501
  3. CALTRATE + D [Concomitant]
  4. DILANTIN [Concomitant]
  5. DITROPAN XL [Concomitant]
  6. ESTRING [Concomitant]
  7. EVISTA [Concomitant]
  8. GLYCOLAX [Concomitant]
  9. NEXIUM [Concomitant]
  10. OXYTROL [Concomitant]
  11. ZYRTEC [Concomitant]
  12. HEPATITIS A VIRUS VACCINE (UNSPE [Concomitant]
  13. HEPATITIS B VIRUS VACCINE (UNSPE [Concomitant]
  14. INFLUENZA VIRUS VACCINE (UNSPECI [Concomitant]
  15. MAGNESIUM (UNSPECIFIED) [Concomitant]
  16. OMEGA-3 MARINE TRIGLYCERIDES [Concomitant]
  17. TETANUS TOXOID [Concomitant]
  18. MULTI-VITAMINS [Concomitant]

REACTIONS (5)
  - BLADDER DISORDER [None]
  - CATARACT [None]
  - EYELID DISORDER [None]
  - IMPAIRED HEALING [None]
  - OSTEONECROSIS [None]
